FAERS Safety Report 7345341-3 (Version None)
Quarter: 2011Q1

REPORT INFORMATION
  Report Type: 
  Country: None (occurrence: None)
  Receive Date: 20110310
  Receipt Date: 20110301
  Transmission Date: 20110831
  Serious: Yes (Hospitalization)
  Sender: FDA-Public Use
  Company Number: US-ELI_LILLY_AND_COMPANY-US201103000910

PATIENT
  Sex: Female

DRUGS (16)
  1. MIRALAX [Concomitant]
  2. ASPIRIN [Concomitant]
  3. ZOFRAN [Concomitant]
  4. DULCOLAX [Concomitant]
  5. LOPID [Concomitant]
  6. FORTEO [Suspect]
     Indication: OSTEOPOROSIS
     Dosage: 20 UG, DAILY (1/D)
     Dates: start: 20101201
  7. TOPROL-XL [Concomitant]
  8. LORTAB [Concomitant]
  9. CIPRO [Concomitant]
  10. XANAX [Concomitant]
  11. FORTICAL                           /00371903/ [Concomitant]
  12. PROTONIX [Concomitant]
  13. KLOR-CON [Concomitant]
  14. NOVOLIN 70/30 [Concomitant]
  15. COLACE [Concomitant]
  16. REGLAN [Concomitant]

REACTIONS (4)
  - ANURIA [None]
  - SEDATION [None]
  - BACK PAIN [None]
  - HEART RATE INCREASED [None]
